FAERS Safety Report 10419137 (Version 1)
Quarter: 2014Q3

REPORT INFORMATION
  Report Type: Report from Study
  Country: US (occurrence: US)
  Receive Date: 20140829
  Receipt Date: 20140829
  Transmission Date: 20150326
  Serious: Yes (Other)
  Sender: FDA-Public Use
  Company Number: US-ROCHE-1456440

PATIENT

DRUGS (9)
  1. CARFILZOMIB [Suspect]
     Active Substance: CARFILZOMIB
     Indication: WALDENSTROM^S MACROGLOBULINAEMIA
     Dosage: INDUCTION THERAPY- INFUSED OVER 20 MINUTES (CYCLE 1 ONLY)
     Route: 042
  2. RITUXIMAB [Suspect]
     Active Substance: RITUXIMAB
     Indication: WALDENSTROM^S MACROGLOBULINAEMIA
     Dosage: INDUCTION THERAPY- ON DAYS 2,9 OF EACH 21-DAY CYCLE
     Route: 065
  3. RITUXIMAB [Suspect]
     Active Substance: RITUXIMAB
     Dosage: MAINTENANCE THERAPY GIVEN ON DAY 2 ONLY EVERY 8 WEEKS FOR 8 CYCLES.
     Route: 065
  4. CARFILZOMIB [Suspect]
     Active Substance: CARFILZOMIB
     Dosage: INDUCTION THERAPY- 36 MG/M2 INFUSED OVER 30 MINUTES (FOR CYCLES 2 AND BEYOND)
     Route: 042
  5. ACYCLOVIR. [Concomitant]
     Active Substance: ACYCLOVIR
     Indication: PROPHYLAXIS
     Dosage: FOR THE DURATION OF THERAPY PLUS 6 MONTHS
     Route: 048
  6. CARFILZOMIB [Suspect]
     Active Substance: CARFILZOMIB
     Dosage: 8 WEEKS LATER WITH MAINTENANCE THERAPY OF  IV CARFILZOMIB, 36 MG/M2.
     Route: 042
  7. DEXAMETHASONE. [Suspect]
     Active Substance: DEXAMETHASONE
     Indication: WALDENSTROM^S MACROGLOBULINAEMIA
     Dosage: INDUCTION THERAPY -ON DAYS 1,2,8,9
     Route: 042
  8. DEXAMETHASONE. [Suspect]
     Active Substance: DEXAMETHASONE
     Dosage: MAINTENANCE THERAPY- IV DEXAMETHASONE, 20MG, GIVEN ON DAYS 1 AND 2, ALONG WITH RITUXIMAB.
     Route: 042
  9. FAMOTIDINE. [Concomitant]
     Active Substance: FAMOTIDINE
     Dosage: DURING WEEKS OF ACTIVE THERAPY FOR PROPHYLAXIS AGAINST DEXAMETHASONE-RELATED GASTROINTESTINAL TOXICI
     Route: 065

REACTIONS (1)
  - Cardiomyopathy [Unknown]
